FAERS Safety Report 19032681 (Version 1)
Quarter: 2021Q1

REPORT INFORMATION
  Report Type: Spontaneous
  Country: CH (occurrence: CH)
  Receive Date: 20210319
  Receipt Date: 20210319
  Transmission Date: 20210420
  Serious: Yes (Death, Hospitalization, Other)
  Sender: FDA-Public Use
  Company Number: CH-AMGEN-CHESP2021038842

PATIENT

DRUGS (7)
  1. MELPHALAN. [Concomitant]
     Active Substance: MELPHALAN
     Dosage: 100 MILLIGRAM/SQ. METER
  2. FILGRASTIM [Suspect]
     Active Substance: FILGRASTIM
     Indication: STEM CELL TRANSPLANT
     Dosage: 5 MICROGRAM/KILOGRAM
     Route: 065
  3. ETOPOSIDE. [Concomitant]
     Active Substance: ETOPOSIDE
  4. BENDAMUSTINE [Concomitant]
     Active Substance: BENDAMUSTINE
  5. CYTARABINE. [Concomitant]
     Active Substance: CYTARABINE
  6. VINORELBINE [Concomitant]
     Active Substance: VINORELBINE TARTRATE
  7. GEMCITABINE. [Concomitant]
     Active Substance: GEMCITABINE

REACTIONS (3)
  - Engraftment syndrome [Unknown]
  - Death [Fatal]
  - Infection [Unknown]
